FAERS Safety Report 18667070 (Version 5)
Quarter: 2021Q4

REPORT INFORMATION
  Report Type: Spontaneous
  Country: PL (occurrence: PL)
  Receive Date: 20201228
  Receipt Date: 20211022
  Transmission Date: 20220303
  Serious: Yes (Life-Threatening, Hospitalization, Other)
  Sender: FDA-Public Use
  Company Number: PL-SUN PHARMACEUTICAL INDUSTRIES LTD-2020RR-272708

PATIENT
  Age: 69 Year
  Sex: Female

DRUGS (8)
  1. ROSUVASTATIN [Suspect]
     Active Substance: ROSUVASTATIN
     Indication: Product used for unknown indication
     Dosage: 10 MILLIGRAM, UNK
     Route: 065
  2. METOPROLOL [Suspect]
     Active Substance: METOPROLOL
     Indication: Product used for unknown indication
     Dosage: 200 MILLIGRAM, DAILY
     Route: 065
  3. METOPROLOL [Suspect]
     Active Substance: METOPROLOL
     Dosage: 100 MILLIGRAM, DAILY
     Route: 065
  4. ASPIRIN [Interacting]
     Active Substance: ASPIRIN
     Indication: Infection
     Dosage: UNK, FOR 3 DAYS
     Route: 065
  5. ITRACONAZOLE [Suspect]
     Active Substance: ITRACONAZOLE
     Indication: Product used for unknown indication
     Dosage: 200 MILLIGRAM, DAILY, FOR 7 DAYS
     Route: 065
  6. NIMESULIDE [Suspect]
     Active Substance: NIMESULIDE
     Indication: Product used for unknown indication
     Dosage: 100 MILLIGRAM, BID
     Route: 065
  7. PROPAFENONE [Suspect]
     Active Substance: PROPAFENONE
     Indication: Product used for unknown indication
     Dosage: 300 MILLIGRAM, AS A SINGLE DOSE
     Route: 065
  8. DABIGATRAN [Interacting]
     Active Substance: DABIGATRAN
     Indication: Product used for unknown indication
     Dosage: 150 MILLIGRAM, BID
     Route: 065

REACTIONS (4)
  - Atrioventricular block complete [Recovered/Resolved]
  - Haemorrhage [Unknown]
  - Drug ineffective [Unknown]
  - Drug interaction [Recovered/Resolved]
